FAERS Safety Report 6103597-9 (Version None)
Quarter: 2009Q1

REPORT INFORMATION
  Report Type: 
  Country: None (occurrence: None)
  Receive Date: 20090305
  Receipt Date: 20090227
  Transmission Date: 20090719
  Serious: Yes (Hospitalization, Other)
  Sender: FDA-Public Use
  Company Number: US-BIOGENIDEC-2009BI000379

PATIENT
  Age: 60 Year
  Sex: Female

DRUGS (5)
  1. TYSABRI [Suspect]
     Indication: MULTIPLE SCLEROSIS
     Route: 042
     Dates: start: 20070706
  2. BACLOFEN [Concomitant]
     Indication: DRUG USE FOR UNKNOWN INDICATION
     Route: 048
  3. BACLOFEN [Concomitant]
     Indication: TREMOR
     Route: 048
  4. BACLOFEN [Concomitant]
  5. BACLOFEN [Concomitant]

REACTIONS (8)
  - CARDIAC FAILURE CONGESTIVE [None]
  - CARPAL TUNNEL SYNDROME [None]
  - DRUG DELIVERY DEVICE IMPLANTATION [None]
  - INTERVERTEBRAL DISC OPERATION [None]
  - MULTIPLE SCLEROSIS [None]
  - NERVOUSNESS [None]
  - TREMOR [None]
  - UMBILICAL HERNIA [None]
